FAERS Safety Report 10009549 (Version 1)
Quarter: 2014Q1

REPORT INFORMATION
  Report Type: Spontaneous
  Country: US (occurrence: US)
  Receive Date: 20140312
  Receipt Date: 20140312
  Transmission Date: 20141002
  Serious: No
  Sender: FDA-Public Use
  Company Number: US-INCYTE CORPORATION-2012IN002053

PATIENT
  Sex: 0

DRUGS (10)
  1. JAKAFI [Suspect]
     Indication: MYELODYSPLASTIC SYNDROME
     Dosage: 10 MG, BID
     Route: 048
     Dates: start: 2012
  2. JAKAFI [Suspect]
     Indication: SPLENOMEGALY
  3. JAKAFI [Suspect]
     Indication: POLYCYTHAEMIA VERA
  4. ENALAPRIL MALEATE [Concomitant]
  5. GLIMEPIRIDE [Concomitant]
  6. OMEPRAZOLE [Concomitant]
  7. TRAMADOL [Concomitant]
  8. AMBIEN [Concomitant]
  9. APAP [Concomitant]
  10. MAXALT MLT [Concomitant]

REACTIONS (2)
  - Diarrhoea [Recovered/Resolved]
  - Dizziness [Not Recovered/Not Resolved]
